FAERS Safety Report 8807272 (Version 2)
Quarter: 2012Q4

REPORT INFORMATION
  Report Type: 
  Country: PE (occurrence: PE)
  Receive Date: 20120925
  Receipt Date: 20121004
  Transmission Date: 20130627
  Serious: Yes (Death)
  Sender: FDA-Public Use
  Company Number: PE-PFIZER INC-2012233795

PATIENT
  Age: 82 Year
  Sex: Female

DRUGS (5)
  1. XALATAN [Suspect]
     Indication: GLAUCOMA
     Dosage: 1 Gtt, 1x/day
     Route: 047
     Dates: end: 20120822
  2. ENALAPRIL [Concomitant]
  3. METFORMIN [Concomitant]
     Route: 048
  4. L-THYROXIN [Concomitant]
     Route: 048
  5. PIOGLITAZONE [Concomitant]

REACTIONS (1)
  - Myocardial infarction [Fatal]
